FAERS Safety Report 4318090-3 (Version None)
Quarter: 2004Q1

REPORT INFORMATION
  Report Type: 
  Country: None (occurrence: None)
  Receive Date: 20040315
  Receipt Date: 20040226
  Transmission Date: 20041129
  Serious: Yes (Hospitalization)
  Sender: FDA-Public Use
  Company Number: 192153

PATIENT
  Age: 53 Year
  Sex: Male
  Weight: 80.7403 kg

DRUGS (8)
  1. AVONEX [Suspect]
     Indication: MULTIPLE SCLEROSIS
     Dosage: 30 MCG QW IM
     Route: 030
     Dates: start: 19970101, end: 20031201
  2. AVONEX [Suspect]
     Indication: MULTIPLE SCLEROSIS
     Dosage: 30 MCG QW IM
     Route: 030
     Dates: start: 20031201
  3. EFFEXOR XR [Concomitant]
  4. NEURONTIN [Concomitant]
  5. LORAZEPAM [Concomitant]
  6. AMIODARONE HCL [Concomitant]
  7. ASPIRIN [Concomitant]
  8. PAIN MEDICATIONS [Concomitant]

REACTIONS (8)
  - BLOOD PRESSURE INCREASED [None]
  - FATIGUE [None]
  - LUMBAR RADICULOPATHY [None]
  - MEMORY IMPAIRMENT [None]
  - NERVE COMPRESSION [None]
  - STRESS SYMPTOMS [None]
  - ULNAR NERVE INJURY [None]
  - URINARY INCONTINENCE [None]
